FAERS Safety Report 22680450 (Version 11)
Quarter: 2024Q2

REPORT INFORMATION
  Report Type: Report from Study
  Country: US (occurrence: US)
  Receive Date: 20230707
  Receipt Date: 20240627
  Transmission Date: 20240716
  Serious: No
  Sender: FDA-Public Use
  Company Number: US-ACADIA PHARMACEUTICALS INC.-ACA-2023-TRF-002367

PATIENT
  Age: 36 Year
  Sex: Female

DRUGS (18)
  1. DAYBUE [Suspect]
     Active Substance: TROFINETIDE
     Indication: Rett syndrome
     Dosage: UP TO 90 ML DAILY
     Route: 048
  2. DAYBUE [Suspect]
     Active Substance: TROFINETIDE
     Dosage: 35 MILLILITER, BID
     Route: 048
  3. DAYBUE [Suspect]
     Active Substance: TROFINETIDE
     Dosage: 10 TO 15 ML, BID
     Route: 048
  4. DAYBUE [Suspect]
     Active Substance: TROFINETIDE
     Dosage: 20 ML AT 10:00AM, 20 ML AT 1:00PM, 15 ML AT 4:30PM AND 15 ML AT 6:30 PM
     Route: 048
  5. DAYBUE [Suspect]
     Active Substance: TROFINETIDE
     Dosage: 80 MILLILITER
     Route: 065
  6. DAYBUE [Suspect]
     Active Substance: TROFINETIDE
     Dosage: 60 MILLILITER, BID
     Route: 048
  7. DAYBUE [Suspect]
     Active Substance: TROFINETIDE
     Dosage: 90-100ML/DAY
     Route: 048
  8. DAYBUE [Suspect]
     Active Substance: TROFINETIDE
     Dosage: 100 MILLILITER, QD
     Route: 048
  9. DAYBUE [Suspect]
     Active Substance: TROFINETIDE
     Dosage: 110 MILLILITER, QD
     Route: 048
  10. DAYBUE [Suspect]
     Active Substance: TROFINETIDE
     Dosage: 60 MILLILITER, BID
     Route: 048
  11. DAYBUE [Suspect]
     Active Substance: TROFINETIDE
     Dosage: 30 MILLILITER, QID
     Route: 048
  12. DAYBUE [Suspect]
     Active Substance: TROFINETIDE
     Dosage: 115ML PER DAY
  13. DAYBUE [Suspect]
     Active Substance: TROFINETIDE
     Dosage: 120ML FOR 2 WEEKS
  14. DAYBUE [Suspect]
     Active Substance: TROFINETIDE
     Dosage: 95ML NOW TOTAL
  15. DAYBUE [Suspect]
     Active Substance: TROFINETIDE
     Dosage: 4 TIMES PER DAY, 10:30 AM, 2:00PM, 4:30 PM AND 6:39 PM. (30ML, 30ML,30ML AND 25ML)
  16. DAYBUE [Suspect]
     Active Substance: TROFINETIDE
     Dosage: 60 MILLILITER, BID
     Route: 048
  17. CANNABIS SATIVA SUBSP. INDICA TOP [Suspect]
     Active Substance: CANNABIS SATIVA SUBSP. INDICA TOP
     Indication: Anxiety
  18. MOTRIN [Concomitant]
     Active Substance: IBUPROFEN
     Indication: Menstruation normal

REACTIONS (42)
  - Nasal congestion [Not Recovered/Not Resolved]
  - Emotional disorder [Not Recovered/Not Resolved]
  - Inappropriate schedule of product administration [Not Recovered/Not Resolved]
  - Dizziness [Not Recovered/Not Resolved]
  - Dizziness [Not Recovered/Not Resolved]
  - Product leakage [Unknown]
  - Inappropriate schedule of product administration [Unknown]
  - Nonspecific reaction [Unknown]
  - Irritability [Not Recovered/Not Resolved]
  - Emotional distress [Not Recovered/Not Resolved]
  - Insomnia [Not Recovered/Not Resolved]
  - Dyspepsia [Unknown]
  - Nausea [Unknown]
  - Flatulence [Unknown]
  - Abdominal distension [Unknown]
  - Constipation [Unknown]
  - Underdose [Not Recovered/Not Resolved]
  - Abnormal behaviour [Unknown]
  - Screaming [Unknown]
  - Liquid product physical issue [Unknown]
  - Dysphagia [Unknown]
  - Cough [Unknown]
  - Product dose omission issue [Unknown]
  - Weight decreased [Unknown]
  - Flatulence [Unknown]
  - Fear [Unknown]
  - Drug interaction [Unknown]
  - Visual impairment [Unknown]
  - Emotional distress [Unknown]
  - Anaemia [Not Recovered/Not Resolved]
  - Amenorrhoea [Not Recovered/Not Resolved]
  - Cough [Not Recovered/Not Resolved]
  - Nasopharyngitis [Not Recovered/Not Resolved]
  - Diarrhoea [Recovered/Resolved]
  - Diarrhoea [Recovered/Resolved]
  - Diarrhoea [Recovered/Resolved]
  - Diarrhoea [Not Recovered/Not Resolved]
  - Diarrhoea [Unknown]
  - Diarrhoea [Unknown]
  - Diarrhoea [Unknown]
  - Anxiety [Unknown]
  - Anxiety [Not Recovered/Not Resolved]

NARRATIVE: CASE EVENT DATE: 20230612
